FAERS Safety Report 9000294 (Version 1)
Quarter: 2013Q1

REPORT INFORMATION
  Report Type: Spontaneous
  Country: US (occurrence: None)
  Receive Date: 20130102
  Receipt Date: 20130102
  Transmission Date: 20140127
  Serious: Yes (Life-Threatening, Hospitalization)
  Sender: FDA-Public Use
  Company Number: None

PATIENT
  Age: 68 Year
  Sex: Male
  Weight: 78.9 kg

DRUGS (1)
  1. IBUPROFEN [Suspect]
     Indication: PAIN
     Dosage: 600 MG TID PO
     Route: 048
     Dates: start: 20121113, end: 20121118

REACTIONS (5)
  - Renal failure acute [None]
  - Hyperkalaemia [None]
  - Blood urea increased [None]
  - Blood creatinine increased [None]
  - Medication error [None]
